FAERS Safety Report 10175098 (Version 2)
Quarter: 2014Q2

REPORT INFORMATION
  Report Type: Spontaneous
  Country: US (occurrence: US)
  Receive Date: 20140515
  Receipt Date: 20140605
  Transmission Date: 20141212
  Serious: No
  Sender: FDA-Public Use
  Company Number: US-009507513-1405USA007518

PATIENT
  Sex: Female

DRUGS (7)
  1. CLARITIN [Suspect]
     Indication: SINUS DISORDER
     Dosage: 1 EVERY DAY
     Route: 048
     Dates: end: 20140430
  2. SYNTHROID [Concomitant]
  3. CYANOCOBALAMIN [Concomitant]
  4. CHOLECALCIFEROL [Concomitant]
  5. CALCIUM (UNSPECIFIED) [Concomitant]
  6. MYRBETRIQ [Concomitant]
  7. OMEGA-3 MARINE TRIGLYCERIDES [Concomitant]

REACTIONS (2)
  - Drug ineffective [Unknown]
  - Off label use [Unknown]
